FAERS Safety Report 5380813-2 (Version None)
Quarter: 2007Q3

REPORT INFORMATION
  Report Type: 
  Country: None (occurrence: None)
  Receive Date: 20070706
  Receipt Date: 20070702
  Transmission Date: 20080115
  Serious: Yes (Other)
  Sender: FDA-Public Use
  Company Number: US-ASTRAZENECA-2006UW22885

PATIENT
  Age: 52 Year
  Sex: Male

DRUGS (1)
  1. SEROQUEL [Suspect]
     Indication: BIPOLAR DISORDER
     Route: 048
     Dates: start: 20040301, end: 20060322

REACTIONS (3)
  - DIABETES MELLITUS [None]
  - MYOCARDIAL INFARCTION [None]
  - SLEEP DISORDER [None]
